FAERS Safety Report 7526002-4 (Version None)
Quarter: 2011Q2

REPORT INFORMATION
  Report Type: 
  Country: None (occurrence: None)
  Receive Date: 20110606
  Receipt Date: 20110531
  Transmission Date: 20111010
  Serious: Yes (Death, Other)
  Sender: FDA-Public Use
  Company Number: LB-ASTRAZENECA-2011SE33773

PATIENT
  Age: 82 Year
  Sex: Male
  Weight: 80 kg

DRUGS (5)
  1. MEROPENEM [Suspect]
     Indication: ESCHERICHIA INFECTION
     Route: 042
     Dates: start: 20110304, end: 20110310
  2. RISEK [Concomitant]
     Indication: PROPHYLAXIS
     Route: 048
  3. BISOPROLOL FUMARATE [Concomitant]
     Indication: ATRIAL FIBRILLATION
     Route: 048
  4. LIPITOR [Concomitant]
     Indication: DYSLIPIDAEMIA
     Route: 048
     Dates: start: 20110301
  5. TRITACE [Concomitant]
     Indication: CARDIAC FAILURE
     Route: 048

REACTIONS (2)
  - PANCYTOPENIA [None]
  - SEPTIC SHOCK [None]
